FAERS Safety Report 9217186 (Version 1)
Quarter: 2013Q2

REPORT INFORMATION
  Report Type: Spontaneous
  Country: US (occurrence: None)
  Receive Date: 20130405
  Receipt Date: 20130405
  Transmission Date: 20140414
  Serious: Yes (Other)
  Sender: FDA-Public Use
  Company Number: None

PATIENT
  Age: 59 Year
  Sex: Male

DRUGS (1)
  1. CIPROFLOXACIN [Suspect]
     Dosage: MG BID PO
     Dates: start: 20121119

REACTIONS (4)
  - Insomnia [None]
  - Tremor [None]
  - Homicidal ideation [None]
  - Suicidal ideation [None]
